FAERS Safety Report 4538553-5 (Version None)
Quarter: 2004Q4

REPORT INFORMATION
  Report Type: 
  Country: None (occurrence: None)
  Receive Date: 20041222
  Receipt Date: 20041210
  Transmission Date: 20050328
  Serious: Yes (Death)
  Sender: FDA-Public Use
  Company Number: F04200400317

PATIENT

DRUGS (2)
  1. ELOXATIN [Suspect]
     Indication: COLORECTAL CANCER METASTATIC
     Dosage: 85 MG/M2 OTHER (CUMULATIVE DOSE : 85 MG/M2)
     Route: 041
  2. HYCAMTIN - (TOPOTECAN HYDROCHLORIDE) [Suspect]
     Indication: COLORECTAL CANCER METASTATIC
     Dosage: 0.9 MG/M2 (CUMULATIVE DOSE : 4.5 MG/M2)
     Route: 041

REACTIONS (2)
  - FEBRILE NEUTROPENIA [None]
  - SEPSIS [None]
